FAERS Safety Report 7626032-8 (Version None)
Quarter: 2011Q3

REPORT INFORMATION
  Report Type: 
  Country: None (occurrence: None)
  Receive Date: 20110713
  Receipt Date: 20110630
  Transmission Date: 20111222
  Serious: Yes (Hospitalization)
  Sender: FDA-Public Use
  Company Number: JPI-P-015660

PATIENT
  Age: 35 Year
  Sex: Male
  Weight: 124.7392 kg

DRUGS (1)
  1. XYREM [Suspect]
     Indication: CATAPLEXY
     Dosage: ORAL ; 9 GM (4.5 GM,2 IN 1 D),ORAL
     Route: 048
     Dates: start: 20090101

REACTIONS (4)
  - INFLUENZA LIKE ILLNESS [None]
  - OEDEMA PERIPHERAL [None]
  - DISEASE RECURRENCE [None]
  - STAPHYLOCOCCAL INFECTION [None]
